FAERS Safety Report 25535097 (Version 1)
Quarter: 2025Q3

REPORT INFORMATION
  Report Type: Spontaneous
  Country: US (occurrence: US)
  Receive Date: 20250709
  Receipt Date: 20250709
  Transmission Date: 20251020
  Serious: Yes (Other)
  Sender: TEVA
  Company Number: US-TEVA-VS-3348913

PATIENT
  Age: 35 Year
  Sex: Female

DRUGS (2)
  1. METOCLOPRAMIDE [Suspect]
     Active Substance: METOCLOPRAMIDE
     Indication: Morning sickness
     Route: 048
     Dates: start: 20250325
  2. TORSEMIDE [Suspect]
     Active Substance: TORSEMIDE
     Indication: Morning sickness
     Route: 048
     Dates: start: 20250325

REACTIONS (8)
  - Dehydration [Unknown]
  - Recalled product administered [Unknown]
  - Dizziness [Unknown]
  - Morning sickness [Unknown]
  - Maternal exposure during pregnancy [Unknown]
  - Product commingling [Unknown]
  - Circumstance or information capable of leading to medication error [Unknown]
  - Wrong product administered [Unknown]

NARRATIVE: CASE EVENT DATE: 20250301
